FAERS Safety Report 8314680-1 (Version None)
Quarter: 2012Q2

REPORT INFORMATION
  Report Type: 
  Country: None (occurrence: None)
  Receive Date: 20120426
  Receipt Date: 20120416
  Transmission Date: 20120825
  Serious: Yes (Hospitalization, Other)
  Sender: FDA-Public Use
  Company Number: CA-ELI_LILLY_AND_COMPANY-CA201204006097

PATIENT
  Sex: Female

DRUGS (17)
  1. PREDNISONE TAB [Concomitant]
     Dosage: 5 MG, QD
  2. ARAVA [Concomitant]
     Dosage: 10 MG, QD
  3. DILAUDID [Concomitant]
  4. PRAMIPEXOLE DIHYDROCHLORIDE [Concomitant]
  5. HYDROMORPHONE HCL [Concomitant]
  6. NEXIUM [Concomitant]
  7. ACETAMINOPHEN [Concomitant]
  8. LYRICA [Concomitant]
     Dosage: 20 MG, QD
  9. ATENOLOL [Concomitant]
  10. NAPROXEN [Concomitant]
  11. CALCIUM [Concomitant]
  12. AMILORIDE HYDROCHLORIDE [Concomitant]
  13. OXYBUTYNIN [Concomitant]
  14. CYMBALTA [Suspect]
     Dosage: 60 MG, QD
  15. ORENCIA [Concomitant]
     Indication: RHEUMATOID ARTHRITIS
     Dosage: 750 MG, OTHER
     Route: 042
     Dates: start: 20111020, end: 20111216
  16. CALCITONIN SALMON [Concomitant]
  17. LEVOTHYROXINE SODIUM [Concomitant]
     Dosage: .50 MG, UNK

REACTIONS (16)
  - HAEMOGLOBIN DECREASED [None]
  - ABDOMINAL PAIN [None]
  - BURSITIS [None]
  - INFLAMMATION [None]
  - POST PROCEDURAL INFECTION [None]
  - VISUAL IMPAIRMENT [None]
  - DIARRHOEA [None]
  - URINARY TRACT INFECTION [None]
  - WOUND COMPLICATION [None]
  - WEIGHT DECREASED [None]
  - BONE GRAFT [None]
  - VOMITING [None]
  - SLEEP APNOEA SYNDROME [None]
  - ASTHENIA [None]
  - NAUSEA [None]
  - CLOSTRIDIAL INFECTION [None]
